FAERS Safety Report 14830910 (Version 3)
Quarter: 2018Q2

REPORT INFORMATION
  Report Type: Report from Study
  Country: US (occurrence: US)
  Receive Date: 20180430
  Receipt Date: 20180628
  Transmission Date: 20180711
  Serious: Yes (Hospitalization, Other)
  Sender: FDA-Public Use
  Company Number: US-GILEAD-2018-0335739

PATIENT
  Age: 95 Year
  Sex: Female
  Weight: 53.61 kg

DRUGS (1)
  1. IDELALISIB [Suspect]
     Active Substance: IDELALISIB
     Indication: NON-HODGKIN^S LYMPHOMA
     Dosage: 100 MG, BID
     Route: 048
     Dates: start: 201706

REACTIONS (6)
  - Cardiovascular disorder [Unknown]
  - Fall [Unknown]
  - Delirium [Recovered/Resolved]
  - Fatigue [Unknown]
  - Hip fracture [Unknown]
  - Dysarthria [Unknown]
